FAERS Safety Report 9680116 (Version 1)
Quarter: 2013Q4

REPORT INFORMATION
  Report Type: Report from Study
  Country: MX (occurrence: MX)
  Receive Date: 20131111
  Receipt Date: 20131111
  Transmission Date: 20140711
  Serious: Yes (Hospitalization)
  Sender: FDA-Public Use
  Company Number: MX-ROCHE-1297496

PATIENT
  Age: 62 Year
  Sex: Female
  Weight: 68.6 kg

DRUGS (2)
  1. HERCEPTIN [Suspect]
     Indication: BREAST CANCER
     Route: 042
     Dates: start: 201303, end: 20130902
  2. NPH INSULIN [Concomitant]
     Indication: DIABETES MELLITUS
     Dosage: 15 IU, 10 IU
     Route: 058
     Dates: start: 1997

REACTIONS (5)
  - Cholelithiasis [Recovered/Resolved]
  - Medication error [Unknown]
  - Oedema peripheral [Recovering/Resolving]
  - Rash maculo-papular [Recovering/Resolving]
  - Hypertension [Not Recovered/Not Resolved]
